FAERS Safety Report 24232860 (Version 2)
Quarter: 2024Q4

REPORT INFORMATION
  Report Type: Spontaneous
  Country: US (occurrence: US)
  Receive Date: 20240821
  Receipt Date: 20241223
  Transmission Date: 20250115
  Serious: Yes (Death)
  Sender: AMGEN
  Company Number: US-AMGEN-USASP2024164166

PATIENT

DRUGS (4)
  1. BEVACIZUMAB [Suspect]
     Active Substance: BEVACIZUMAB
     Indication: Astrocytoma
     Dosage: UNK
     Route: 065
  2. BEVACIZUMAB [Suspect]
     Active Substance: BEVACIZUMAB
     Indication: Oligodendroglioma
  3. IVOSIDENIB [Suspect]
     Active Substance: IVOSIDENIB
     Indication: Glioma
     Dosage: UNK
     Route: 065
  4. ENASIDENIB [Suspect]
     Active Substance: ENASIDENIB
     Indication: Glioma
     Dosage: UNK
     Route: 065

REACTIONS (5)
  - Malignant oligodendroglioma [Fatal]
  - Astrocytoma malignant [Fatal]
  - Hepatic enzyme abnormal [Unknown]
  - Off label use [Unknown]
  - Headache [Unknown]
